FAERS Safety Report 5094539-6 (Version None)
Quarter: 2006Q3

REPORT INFORMATION
  Report Type: 
  Country: None (occurrence: None)
  Receive Date: 20060731
  Receipt Date: 20060421
  Transmission Date: 20061208
  Serious: No
  Sender: FDA-Public Use
  Company Number: 2006PV012582

PATIENT
  Age: 73 Year
  Sex: Female
  Weight: 104.3273 kg

DRUGS (6)
  1. BYETTA [Suspect]
     Indication: DIABETES MELLITUS NON-INSULIN-DEPENDENT
     Dosage: 5 NCG; BID; SC; SEE IMAGE
     Route: 058
     Dates: start: 20060401, end: 20060409
  2. BYETTA [Suspect]
     Indication: DIABETES MELLITUS NON-INSULIN-DEPENDENT
     Dosage: 5 NCG; BID; SC; SEE IMAGE
     Route: 058
     Dates: start: 20060410
  3. AMARYL [Concomitant]
  4. GLUCOPHAGE [Concomitant]
  5. TOPROL-XL [Concomitant]
  6. ZOLOFT [Concomitant]

REACTIONS (10)
  - BLOOD GLUCOSE DECREASED [None]
  - BLOOD GLUCOSE INCREASED [None]
  - DIZZINESS [None]
  - ENERGY INCREASED [None]
  - FEELING JITTERY [None]
  - HEADACHE [None]
  - HERNIA [None]
  - HYPERHIDROSIS [None]
  - NAUSEA [None]
  - WEIGHT DECREASED [None]
